FAERS Safety Report 16659733 (Version 1)
Quarter: 2019Q3

REPORT INFORMATION
  Report Type: Spontaneous
  Country: FR (occurrence: FR)
  Receive Date: 20190802
  Receipt Date: 20190802
  Transmission Date: 20191004
  Serious: Yes (Hospitalization, Other)
  Sender: FDA-Public Use
  Company Number: FR-TEVA-2019-FR-1087146

PATIENT
  Age: 72 Year
  Sex: Male

DRUGS (11)
  1. PANTOPRAZOLE [Suspect]
     Active Substance: PANTOPRAZOLE
     Indication: ANTACID THERAPY
     Route: 065
  2. ALPRAZOLAM. [Concomitant]
     Active Substance: ALPRAZOLAM
     Route: 065
  3. LEUPRORELIN [Concomitant]
     Active Substance: LEUPROLIDE ACETATE
     Route: 065
  4. DIGOXIN. [Concomitant]
     Active Substance: DIGOXIN
     Route: 065
  5. NEBIVOLOL. [Concomitant]
     Active Substance: NEBIVOLOL
     Route: 065
  6. FUROSEMIDE. [Concomitant]
     Active Substance: FUROSEMIDE
     Route: 065
  7. ENZALUTAMIDE [Interacting]
     Active Substance: ENZALUTAMIDE
     Indication: HORMONE-REFRACTORY PROSTATE CANCER
  8. FLUINDIONE [Interacting]
     Active Substance: FLUINDIONE
     Indication: ANTICOAGULANT THERAPY
     Dosage: 20 MILLIGRAM DAILY; 1/4 TO 1/2 TABLET [INITIAL DOSE NOT STATED]
     Route: 065
  9. FLUINDIONE [Interacting]
     Active Substance: FLUINDIONE
     Dosage: RECENT INTAKE OF 2 FLUINDIONE TABLETS AT 2 DAYS IN A ROW (INSTEAD OF THE RECOMMENDED DOSE)
     Route: 065
  10. ENZALUTAMIDE [Interacting]
     Active Substance: ENZALUTAMIDE
     Indication: PROSTATE CANCER METASTATIC
     Route: 065
  11. POTASSIUM CHLORIDE. [Concomitant]
     Active Substance: POTASSIUM CHLORIDE
     Route: 065

REACTIONS (7)
  - Erosive oesophagitis [Unknown]
  - Gastrointestinal haemorrhage [Unknown]
  - Drug interaction [Unknown]
  - International normalised ratio fluctuation [Unknown]
  - Overdose [Unknown]
  - Therapeutic product effect decreased [Unknown]
  - Gastritis erosive [Unknown]
